FAERS Safety Report 19026807 (Version 3)
Quarter: 2021Q3

REPORT INFORMATION
  Report Type: Spontaneous
  Country: US (occurrence: US)
  Receive Date: 20210318
  Receipt Date: 20210819
  Transmission Date: 20211014
  Serious: No
  Sender: FDA-Public Use
  Company Number: US-PFIZER INC-2020101695

PATIENT
  Age: 66 Year
  Sex: Female

DRUGS (3)
  1. XALKORI [Suspect]
     Active Substance: CRIZOTINIB
     Indication: INTRAVENOUS LEIOMYOMATOSIS
     Dosage: 250 MG, 1X/DAY
     Dates: start: 2020
  2. OXYCODONE [Concomitant]
     Active Substance: OXYCODONE
     Indication: PAIN
  3. XALKORI [Suspect]
     Active Substance: CRIZOTINIB
     Indication: SOFT TISSUE SARCOMA

REACTIONS (2)
  - Neoplasm progression [Unknown]
  - Off label use [Unknown]
